FAERS Safety Report 5691083-X (Version None)
Quarter: 2008Q2

REPORT INFORMATION
  Report Type: 
  Country: None (occurrence: None)
  Receive Date: 20080401
  Receipt Date: 20080321
  Transmission Date: 20081010
  Serious: Yes (Other)
  Sender: FDA-Public Use
  Company Number: US-PFIZER INC-2008026794

PATIENT
  Sex: Female
  Weight: 63.636 kg

DRUGS (2)
  1. CHANTIX [Suspect]
     Indication: SMOKING CESSATION THERAPY
     Dates: start: 20071101, end: 20080101
  2. DEPO-PROVERA [Concomitant]
     Indication: CONTRACEPTION

REACTIONS (7)
  - MACULAR OEDEMA [None]
  - OCULAR VASCULAR DISORDER [None]
  - RETINAL DEGENERATION [None]
  - RETINAL DISORDER [None]
  - RETINAL NEOVASCULARISATION [None]
  - VASOCONSTRICTION [None]
  - VISION BLURRED [None]
